FAERS Safety Report 6449408-3 (Version None)
Quarter: 2009Q4

REPORT INFORMATION
  Report Type: 
  Country: None (occurrence: None)
  Receive Date: 20091120
  Receipt Date: 20091105
  Transmission Date: 20100525
  Serious: Yes (Hospitalization, Other)
  Sender: FDA-Public Use
  Company Number: GB-BAUSCH-2009BL006012

PATIENT
  Age: 27 Year
  Sex: Female

DRUGS (4)
  1. PREDNISOLONE [Suspect]
     Indication: IMMUNOSUPPRESSION
     Dates: start: 20070301
  2. AZATHIOPRINE [Suspect]
     Indication: IMMUNOSUPPRESSION
     Dates: start: 20070301
  3. CYCLOSPORINE [Suspect]
     Indication: IMMUNOSUPPRESSION
     Dates: start: 20070301
  4. CORTICOSTEROIDS [Concomitant]
     Dates: start: 20071101

REACTIONS (2)
  - DRUG EXPOSURE DURING PREGNANCY [None]
  - PREGNANCY INDUCED HYPERTENSION [None]
